FAERS Safety Report 8587410-6 (Version None)
Quarter: 2012Q3

REPORT INFORMATION
  Report Type: 
  Country: None (occurrence: None)
  Receive Date: 20120810
  Receipt Date: 20120207
  Transmission Date: 20120928
  Serious: No
  Sender: FDA-Public Use
  Company Number: US-ASTRAZENECA-2011SE72542

PATIENT
  Sex: Female
  Weight: 91.6 kg

DRUGS (2)
  1. ANASTROZOLE [Suspect]
     Route: 048
  2. NEXIUM [Concomitant]
     Indication: GASTROOESOPHAGEAL REFLUX DISEASE

REACTIONS (4)
  - ARTHRALGIA [None]
  - DRUG ERUPTION [None]
  - ADVERSE DRUG REACTION [None]
  - PAIN [None]
